FAERS Safety Report 8336757-7 (Version None)
Quarter: 2012Q2

REPORT INFORMATION
  Report Type: 
  Country: None (occurrence: None)
  Receive Date: 20120504
  Receipt Date: 20120424
  Transmission Date: 20120825
  Serious: Yes (Hospitalization, Other)
  Sender: FDA-Public Use
  Company Number: CA-JNJFOC-20120211349

PATIENT
  Sex: Female
  Weight: 70 kg

DRUGS (8)
  1. REMICADE [Suspect]
     Route: 042
     Dates: start: 20071102
  2. FLAGYL [Concomitant]
     Route: 065
  3. REMICADE [Suspect]
     Dosage: 30TH INFUSION
     Route: 042
     Dates: start: 20120424
  4. REMICADE [Suspect]
     Indication: CROHN'S DISEASE
     Route: 042
     Dates: start: 20071024
  5. PREVACID [Concomitant]
     Route: 065
  6. MESASAL [Concomitant]
     Route: 065
  7. IRON MEDICINE [Concomitant]
     Route: 065
  8. ENTOCORT EC [Concomitant]

REACTIONS (8)
  - DEHYDRATION [None]
  - INTESTINAL PERFORATION [None]
  - PYREXIA [None]
  - HEADACHE [None]
  - ASTHENIA [None]
  - EYE DISORDER [None]
  - ABDOMINAL PAIN [None]
  - DYSPNOEA [None]
